FAERS Safety Report 8544200-8 (Version None)
Quarter: 2012Q3

REPORT INFORMATION
  Report Type: 
  Country: None (occurrence: None)
  Receive Date: 20120727
  Receipt Date: 20120723
  Transmission Date: 20120928
  Serious: Yes (Hospitalization, Disabling)
  Sender: FDA-Public Use
  Company Number: PHFR2012GB002402

PATIENT
  Sex: Male

DRUGS (13)
  1. GLUCOPHAGE [Concomitant]
  2. LAMOTRIGINE [Concomitant]
  3. OLANZAPINE [Concomitant]
  4. ASPIRIN [Concomitant]
  5. LACTULOSE [Concomitant]
  6. SERENTIL [Concomitant]
  7. SPIRIVA [Concomitant]
  8. CLOMIPRAMINE HCL [Concomitant]
  9. CLOZARIL [Suspect]
     Indication: SCHIZOPHRENIA
     Dosage: 700 MG, DAILY
     Route: 048
     Dates: start: 19980521
  10. ZOPICLONE [Concomitant]
  11. OMEPRAZOLE [Concomitant]
  12. MOVIPREP [Concomitant]
  13. ATORVASTATIN [Concomitant]

REACTIONS (3)
  - LOWER RESPIRATORY TRACT INFECTION [None]
  - OEDEMA PERIPHERAL [None]
  - ASCITES [None]
